FAERS Safety Report 7357994-4 (Version None)
Quarter: 2011Q1

REPORT INFORMATION
  Report Type: 
  Country: None (occurrence: None)
  Receive Date: 20110317
  Receipt Date: 20110307
  Transmission Date: 20110831
  Serious: Yes (Hospitalization)
  Sender: FDA-Public Use
  Company Number: US-SANOFI-AVENTIS-2011SA012608

PATIENT
  Age: 60 Year
  Sex: Female
  Weight: 91 kg

DRUGS (17)
  1. MULTAQ [Suspect]
     Indication: ATRIAL FIBRILLATION
     Route: 048
     Dates: start: 20110104, end: 20110205
  2. AMIODARONE HCL [Suspect]
     Route: 065
  3. JANUMET [Concomitant]
     Dosage: 50 PER 1000MG TWICE DAILY
  4. LANTUS [Concomitant]
     Dosage: AS DIRECTED DOSE:100 UNIT(S)
  5. SIMVASTATIN [Suspect]
     Route: 065
  6. AMLODIPINE [Concomitant]
  7. ASPIRIN [Concomitant]
  8. NIACIN [Concomitant]
  9. COUMADIN [Suspect]
     Route: 065
  10. LORAZEPAM [Concomitant]
     Dosage: 1 MG Q4H PRN
  11. LAMOTRIGINE [Concomitant]
  12. HYZAAR [Concomitant]
  13. IBUPROFEN [Concomitant]
  14. MULTI-VITAMINS [Concomitant]
  15. TRAZODONE [Concomitant]
  16. DILTIAZEM [Concomitant]
  17. CYMBALTA [Concomitant]

REACTIONS (9)
  - DYSPNOEA EXERTIONAL [None]
  - FATIGUE [None]
  - ATRIAL FIBRILLATION [None]
  - PALPITATIONS [None]
  - HEPATOCELLULAR INJURY [None]
  - HEPATIC STEATOSIS [None]
  - INTERNATIONAL NORMALISED RATIO INCREASED [None]
  - DIZZINESS [None]
  - OFF LABEL USE [None]
